FAERS Safety Report 6856634-8 (Version None)
Quarter: 2010Q3

REPORT INFORMATION
  Report Type: 
  Country: None (occurrence: None)
  Receive Date: 20100716
  Receipt Date: 20100716
  Transmission Date: 20110219
  Serious: Yes (Life-Threatening, Hospitalization, Disabling)
  Sender: FDA-Public Use
  Company Number: None

PATIENT
  Age: 62 Year
  Sex: Male
  Weight: 49 kg

DRUGS (16)
  1. ABCIXIMAB 10MG/5ML [Suspect]
     Indication: PERCUTANEOUS CORONARY INTERVENTION
     Dates: start: 20100710, end: 20100710
  2. HEPARIN [Suspect]
     Indication: PERCUTANEOUS CORONARY INTERVENTION
     Dates: start: 20100710, end: 20100710
  3. CLOPIDOGREL [Concomitant]
  4. FLONASE [Concomitant]
  5. EPO [Concomitant]
  6. CLONIDINE [Concomitant]
  7. NTG SL [Concomitant]
  8. ZEMPLAR [Concomitant]
  9. CARVEDILOL [Concomitant]
  10. IMDUR [Concomitant]
  11. FUROSEMIDE [Concomitant]
  12. ASPIRIN [Concomitant]
  13. LISINOPRIL [Concomitant]
  14. CALCIUM CARBONATE [Concomitant]
  15. VANCOMYCIN [Concomitant]
  16. LEVOFLOXACIN [Concomitant]

REACTIONS (1)
  - THROMBOCYTOPENIA [None]
